FAERS Safety Report 15825419 (Version 2)
Quarter: 2019Q1

REPORT INFORMATION
  Report Type: Spontaneous
  Country: DE (occurrence: DE)
  Receive Date: 20190115
  Receipt Date: 20190206
  Transmission Date: 20190417
  Serious: Yes (Other)
  Sender: FDA-Public Use
  Company Number: DE-BAYER-2019-010180

PATIENT
  Age: 74 Year
  Sex: Female
  Weight: 71 kg

DRUGS (4)
  1. METHOTREXATE. [Interacting]
     Active Substance: METHOTREXATE
     Indication: PSORIASIS
     Dosage: 15 MG, OW
  2. ACETYLSALICYLIC ACID({=100 MG) [Suspect]
     Active Substance: ASPIRIN
  3. PANTOPRAZOLE [Concomitant]
     Active Substance: PANTOPRAZOLE
  4. HYDROCHLOROTHIAZIDE. [Concomitant]
     Active Substance: HYDROCHLOROTHIAZIDE

REACTIONS (15)
  - Nephropathy toxic [None]
  - Toxicity to various agents [Unknown]
  - Granulocytopenia [None]
  - Procalcitonin increased [Unknown]
  - Bone marrow failure [Unknown]
  - Drug interaction [Unknown]
  - Skin erosion [Unknown]
  - Psoriasis [Unknown]
  - Thrombocytopenia [Unknown]
  - C-reactive protein increased [Unknown]
  - Contraindicated product administered [None]
  - Epidermal necrosis [None]
  - Labelled drug-drug interaction medication error [None]
  - Congenital dyskeratosis [None]
  - Sepsis [Unknown]
